FAERS Safety Report 25199228 (Version 1)
Quarter: 2025Q2

REPORT INFORMATION
  Report Type: Spontaneous
  Country: US (occurrence: US)
  Receive Date: 20250415
  Receipt Date: 20250415
  Transmission Date: 20250716
  Serious: No
  Sender: CALLIDITAS THERAPEUTICS
  Company Number: US-Calliditas-2025CAL00940

PATIENT
  Age: 39 Year
  Sex: Male

DRUGS (8)
  1. TARPEYO [Suspect]
     Active Substance: BUDESONIDE
     Indication: IgA nephropathy
     Route: 048
     Dates: start: 20250319
  2. ALLOPURINOL [Concomitant]
     Active Substance: ALLOPURINOL
  3. FARXIGA [Concomitant]
     Active Substance: DAPAGLIFLOZIN PROPANEDIOL
  4. FISH OIL [Concomitant]
     Active Substance: FISH OIL
  5. HYDROCHLOROTHIAZIDE [Concomitant]
     Active Substance: HYDROCHLOROTHIAZIDE
  6. PENTOXIFYLLINE [Concomitant]
     Active Substance: PENTOXIFYLLINE
  7. LISINOPRIL [Concomitant]
     Active Substance: LISINOPRIL
  8. PRAVASTATIN [Concomitant]
     Active Substance: PRAVASTATIN

REACTIONS (1)
  - Increased appetite [Not Recovered/Not Resolved]
